FAERS Safety Report 10531122 (Version 10)
Quarter: 2016Q4

REPORT INFORMATION
  Report Type: Spontaneous
  Country: US (occurrence: US)
  Receive Date: 20141021
  Receipt Date: 20161129
  Transmission Date: 20170206
  Serious: No
  Sender: FDA-Public Use
  Company Number: US-GLAXOSMITHKLINE-US2014GSK007997

PATIENT
  Age: 65 Year
  Sex: Female

DRUGS (11)
  1. ADEMPAS [Concomitant]
     Active Substance: RIOCIGUAT
     Dosage: UNK
  2. ADCIRCA [Concomitant]
     Active Substance: TADALAFIL
     Indication: PRODUCT USED FOR UNKNOWN INDICATION
     Dosage: UNK
  3. FLOLAN [Suspect]
     Active Substance: EPOPROSTENOL SODIUM
     Dosage: 9.5 NG/KG/MIN, CO
     Route: 042
  4. FLOLAN [Suspect]
     Active Substance: EPOPROSTENOL SODIUM
     Dosage: 9.5 NG/KG/MIN (CONCENTRATION 15000 NG/ML,PUMP RATE 64 ML/DAY,VIAL SRENGTH 1.5 MG/ML), CO
     Dates: start: 20140926
  5. FLOLAN [Suspect]
     Active Substance: EPOPROSTENOL SODIUM
     Dosage: 9.5 NG/KG/MIN CONTINUOUS
     Route: 042
     Dates: start: 20140926
  6. FLOLAN DILUENT SOLUTION FOR INJECTION [Suspect]
     Active Substance: GLYCINE\MANNITOL\SODIUM CHLORIDE
     Indication: PULMONARY HYPERTENSION
     Dosage: UNK, CO
  7. OPSUMIT [Concomitant]
     Active Substance: MACITENTAN
     Dosage: UNK
  8. FLOLAN [Suspect]
     Active Substance: EPOPROSTENOL SODIUM
     Indication: PULMONARY HYPERTENSION
     Dosage: 9 NG/KG/MIN CONTINUOUSLY; CONCENTRATION: 15,000 NG/ML; PUMP RATE: 60 ML/DAY; VIAL STRENGTH: 1.5 MG
     Route: 042
  9. FLOLAN [Suspect]
     Active Substance: EPOPROSTENOL SODIUM
     Indication: PULMONARY ARTERIAL HYPERTENSION
     Dosage: 4 NG/KG/MIN, CO
     Route: 042
     Dates: start: 20140926
  10. FLOLAN [Suspect]
     Active Substance: EPOPROSTENOL SODIUM
     Dosage: 9.5 NG/KG/MIN CONTINUOUS
     Route: 042
     Dates: start: 20140926
  11. FLOLAN [Suspect]
     Active Substance: EPOPROSTENOL SODIUM
     Dosage: 10 DF, CO

REACTIONS (13)
  - Device malfunction [Unknown]
  - Emergency care [Unknown]
  - Sinusitis [Unknown]
  - Device alarm issue [Unknown]
  - Feeling abnormal [Unknown]
  - Medication error [Unknown]
  - Pain in jaw [Recovering/Resolving]
  - Diarrhoea [Unknown]
  - Dyspnoea [Unknown]
  - Ill-defined disorder [Unknown]
  - Tooth extraction [Unknown]
  - Drug dose omission [Recovered/Resolved]
  - Headache [Unknown]

NARRATIVE: CASE EVENT DATE: 20161114
